FAERS Safety Report 8290659-3 (Version None)
Quarter: 2012Q2

REPORT INFORMATION
  Report Type: 
  Country: None (occurrence: None)
  Receive Date: 20120417
  Receipt Date: 20110405
  Transmission Date: 20120825
  Serious: No
  Sender: FDA-Public Use
  Company Number: US-ASTRAZENECA-2011SE06084

PATIENT
  Age: 68 Year
  Sex: Female

DRUGS (1)
  1. NEXIUM [Suspect]
     Route: 048

REACTIONS (11)
  - ABDOMINAL DISTENSION [None]
  - BACTERIAL INFECTION [None]
  - NAUSEA [None]
  - FUNGAL INFECTION [None]
  - FLATULENCE [None]
  - WRONG DRUG ADMINISTERED [None]
  - BLOOD CHOLESTEROL INCREASED [None]
  - DEPRESSED MOOD [None]
  - ADVERSE DRUG REACTION [None]
  - RASH [None]
  - BLOOD GLUCOSE INCREASED [None]
